FAERS Safety Report 11929997 (Version 1)
Quarter: 2016Q1

REPORT INFORMATION
  Report Type: Spontaneous
  Country: US (occurrence: US)
  Receive Date: 20160120
  Receipt Date: 20160120
  Transmission Date: 20160526
  Serious: Yes (Disabling)
  Sender: FDA-Public Use
  Company Number: US-PERRIGO-16US000216

PATIENT
  Age: 38 Year
  Sex: Female
  Weight: 53.52 kg

DRUGS (2)
  1. MICONAZOLE NITRATE 3 DAY COMBO PACK 214/650 200 MG 081 [Suspect]
     Active Substance: MICONAZOLE NITRATE
     Indication: VULVOVAGINAL MYCOTIC INFECTION
     Dosage: 200 MG, SINGLE IN THE MORNING
     Route: 067
     Dates: start: 20151212, end: 20151212
  2. MICONAZOLE NITRATE 3 DAY COMBO PACK 214/650 200 MG 081 [Suspect]
     Active Substance: MICONAZOLE NITRATE
     Dosage: 200 MG, QD AT BEDTIME
     Route: 067
     Dates: start: 20151213, end: 20151214

REACTIONS (3)
  - Inappropriate schedule of drug administration [Recovered/Resolved]
  - Abdominal pain [Recovered/Resolved]
  - Localised oedema [Recovered/Resolved]

NARRATIVE: CASE EVENT DATE: 20151212
